FAERS Safety Report 7052344-5 (Version None)
Quarter: 2010Q4

REPORT INFORMATION
  Report Type: 
  Country: None (occurrence: None)
  Receive Date: 20101019
  Receipt Date: 20101011
  Transmission Date: 20110411
  Serious: Yes (Hospitalization)
  Sender: FDA-Public Use
  Company Number: SE-ABBOTT-10P-150-0672661-00

PATIENT
  Sex: Female

DRUGS (10)
  1. KLACID [Suspect]
     Indication: DUODENAL ULCER
     Dates: start: 20100830, end: 20100904
  2. FLAGYL [Suspect]
     Indication: DUODENAL ULCER
     Dates: start: 20100830, end: 20100904
  3. TEGRETOL [Suspect]
     Indication: EPILEPSY
     Dates: start: 20100818, end: 20100904
  4. CIPRALEX [Concomitant]
     Indication: PRODUCT USED FOR UNKNOWN INDICATION
  5. RISPERDAL [Concomitant]
     Indication: PRODUCT USED FOR UNKNOWN INDICATION
  6. OMEPRAZOLE [Concomitant]
     Indication: PRODUCT USED FOR UNKNOWN INDICATION
  7. LEVOTHYROXINE SODIUM [Concomitant]
     Indication: PRODUCT USED FOR UNKNOWN INDICATION
  8. SPIRONOLAKTON [Concomitant]
     Indication: PRODUCT USED FOR UNKNOWN INDICATION
  9. PREDNISOLON [Concomitant]
     Indication: PRODUCT USED FOR UNKNOWN INDICATION
  10. PANODIL FORTE [Concomitant]
     Indication: PRODUCT USED FOR UNKNOWN INDICATION

REACTIONS (1)
  - SOMNOLENCE [None]
